FAERS Safety Report 8246257-0 (Version None)
Quarter: 2012Q1

REPORT INFORMATION
  Report Type: 
  Country: None (occurrence: None)
  Receive Date: 20120330
  Receipt Date: 20120321
  Transmission Date: 20120608
  Serious: Yes (Death)
  Sender: FDA-Public Use
  Company Number: US-BAYER-2012-029473

PATIENT
  Age: 56 Year
  Sex: Female
  Weight: 39 kg

DRUGS (19)
  1. LEVOTHYROXINE SODIUM [Concomitant]
     Dosage: DAILY DOSE .05 MG
  2. MIDAZOLAM [Concomitant]
  3. APROTININ [Suspect]
     Dosage: 250000 KIU, UNK
  4. ETOMIDATE [Concomitant]
  5. ROCURONIUM BROMIDE [Concomitant]
  6. OXYGEN [Concomitant]
  7. APROTININ [Suspect]
     Dosage: 1000000 KIU, UNK
  8. APROTININ [Suspect]
     Indication: TRICUSPID VALVE REPAIR
     Dosage: 1000000 KIU, LOADING DOSE
  9. HYDROCORTISONE [Suspect]
     Dosage: 100 MG, UNK
     Route: 042
  10. FENTANYL [Concomitant]
  11. ISOFLURANE [Concomitant]
  12. HEPARIN [Concomitant]
     Dosage: 400 IU/KG, UNK
  13. RED BLOOD CELLS [Concomitant]
     Dosage: 5 U, UNK
     Route: 042
  14. WARFARIN SODIUM [Suspect]
     Dosage: 1 MG, QD
  15. METOPROLOL SUCCINATE [Concomitant]
     Dosage: DAILY DOSE 25 MG
  16. PROTAMINE SULFATE [Concomitant]
     Dosage: 1.3 MG/100 IU HEPARIN
  17. APROTININ [Suspect]
     Indication: HEART VALVE REPLACEMENT
     Dosage: TEST DOSE
  18. DIGOXIN [Concomitant]
     Dosage: DAILY DOSE .062 MG
  19. EPINEPHRINE [Concomitant]
     Dosage: 0.1 ?G/KG, Q1MIN
     Route: 042

REACTIONS (5)
  - THROMBOSIS IN DEVICE [None]
  - ARTERIAL THROMBOSIS LIMB [None]
  - PULMONARY EMBOLISM [None]
  - AORTIC THROMBOSIS [None]
  - CARDIAC FAILURE CONGESTIVE [None]
